FAERS Safety Report 8803240 (Version 2)
Quarter: 2012Q4

REPORT INFORMATION
  Report Type: 
  Country: JP (occurrence: JP)
  Receive Date: 20120924
  Receipt Date: 20120927
  Transmission Date: 20130627
  Serious: Yes (Death)
  Sender: FDA-Public Use
  Company Number: JP-PFIZER INC-2012214567

PATIENT
  Age: 84 Year
  Sex: Female

DRUGS (4)
  1. ADRIACIN [Suspect]
     Indication: DIFFUSE LARGE B-CELL LYMPHOMA
     Dosage: UNK
  2. VINCRISTINE SULFATE [Concomitant]
  3. CYCLOPHOSPHAMIDE [Concomitant]
  4. PREDONINE [Concomitant]

REACTIONS (2)
  - Second primary malignancy [Fatal]
  - Mycosis fungoides [Fatal]
